FAERS Safety Report 7470250-9 (Version None)
Quarter: 2011Q2

REPORT INFORMATION
  Report Type: 
  Country: None (occurrence: None)
  Receive Date: 20110510
  Receipt Date: 20110504
  Transmission Date: 20111010
  Serious: Yes (Other)
  Sender: FDA-Public Use
  Company Number: PHHY2011GB37371

PATIENT
  Age: 66 Year
  Sex: Male

DRUGS (1)
  1. PHENOXYMETHYLPENICILLIN [Suspect]
     Dosage: UNK UKN, UNK
     Dates: start: 20110420

REACTIONS (1)
  - MENTAL STATUS CHANGES [None]
